FAERS Safety Report 8803483 (Version 1)
Quarter: 2012Q4

REPORT INFORMATION
  Report Type: Report from Study
  Country: FR (occurrence: FR)
  Receive Date: 20120924
  Receipt Date: 20120924
  Transmission Date: 20130627
  Serious: Yes (Hospitalization, Disabling)
  Sender: FDA-Public Use
  Company Number: PHHY2011FR08691

PATIENT
  Age: 84 None
  Sex: Female
  Weight: 52 kg

DRUGS (13)
  1. AMN107 [Suspect]
     Indication: CHRONIC MYELOID LEUKAEMIA
     Dosage: 400 mg, BID
     Route: 065
     Dates: start: 200905
  2. ATACAND [Concomitant]
     Indication: HYPERTENSION
     Dosage: 8 mg, daily
     Route: 065
     Dates: start: 200705
  3. KARDEGIC [Concomitant]
     Indication: TRANSIENT ISCHAEMIC ATTACK
     Dosage: 75 mg, daily
     Dates: start: 200705
  4. KARDEGIC [Concomitant]
     Indication: PHLEBITIS
  5. AMLOR [Concomitant]
     Indication: HYPERTENSION
     Dates: start: 200705
  6. PREVISCAN [Concomitant]
  7. ATHYMIL [Concomitant]
  8. TERCIAN [Concomitant]
  9. INIPOMP [Concomitant]
     Dosage: 1 DF, daily
  10. CRESTOR [Concomitant]
     Dosage: 1 DF, daily
  11. DEROXAT [Concomitant]
     Dosage: 1 DF, daily
  12. ZYLORIC [Concomitant]
     Dosage: 1 DF, daily
  13. ALPRAZOLAM [Concomitant]
     Indication: ANXIETY
     Dosage: 0.25 mg, daily
     Dates: start: 200705

REACTIONS (8)
  - Cerebrovascular accident [Recovered/Resolved with Sequelae]
  - Aortic disorder [Recovered/Resolved with Sequelae]
  - Monoplegia [Recovered/Resolved with Sequelae]
  - Blindness [Recovered/Resolved with Sequelae]
  - Gait disturbance [Recovered/Resolved with Sequelae]
  - Fall [Recovered/Resolved with Sequelae]
  - Atrial septal defect [Recovered/Resolved with Sequelae]
  - Cardiac aneurysm [Recovered/Resolved with Sequelae]
